FAERS Safety Report 5672256-9 (Version None)
Quarter: 2008Q1

REPORT INFORMATION
  Report Type: 
  Country: None (occurrence: None)
  Receive Date: 20080317
  Receipt Date: 20080228
  Transmission Date: 20080703
  Serious: Yes (Other)
  Sender: FDA-Public Use
  Company Number: 8030296

PATIENT
  Age: 17 Year
  Sex: Female

DRUGS (9)
  1. KEPPRA [Suspect]
     Indication: COMPLEX PARTIAL SEIZURES
     Dosage: 250 MG 1/D
     Dates: start: 20071220, end: 20071224
  2. KEPPRA [Suspect]
     Indication: COMPLEX PARTIAL SEIZURES
     Dosage: 500 MG 1/D
     Dates: start: 20071224, end: 20071228
  3. KEPPRA [Suspect]
     Indication: COMPLEX PARTIAL SEIZURES
     Dosage: 750 MG D/
  4. KEPPRA   COMPLEX PARTIAL SEIZURES [Suspect]
     Indication: COMPLEX PARTIAL SEIZURES
     Dosage: 1000 MG /D
     Dates: start: 20080101, end: 20080105
  5. KEPPRA [Suspect]
     Indication: COMPLEX PARTIAL SEIZURES
     Dosage: 1250 MG/ D
     Dates: start: 20080105, end: 20080109
  6. KEPPRA [Suspect]
     Indication: COMPLEX PARTIAL SEIZURES
     Dosage: 1500 MG / D
     Dates: start: 20080109, end: 20080113
  7. KEPPRA [Suspect]
     Indication: COMPLEX PARTIAL SEIZURES
     Dosage: 1750 MG/D
     Dates: start: 20080113, end: 20080117
  8. KEPPRA [Suspect]
     Indication: COMPLEX PARTIAL SEIZURES
     Dosage: 1000 MG 2/D
     Dates: start: 20080117, end: 20080130
  9. TEGRETOL [Concomitant]

REACTIONS (4)
  - DEPRESSED MOOD [None]
  - FEELING ABNORMAL [None]
  - INTENTIONAL SELF-INJURY [None]
  - MOOD SWINGS [None]
